FAERS Safety Report 8032795-2 (Version None)
Quarter: 2012Q1

REPORT INFORMATION
  Report Type: 
  Country: None (occurrence: None)
  Receive Date: 20120110
  Receipt Date: 20120107
  Transmission Date: 20120608
  Serious: Yes (Hospitalization, Disabling)
  Sender: FDA-Public Use
  Company Number: US-PFIZER INC-2012005044

PATIENT
  Sex: Male

DRUGS (3)
  1. VIAGRA [Suspect]
     Indication: ERECTILE DYSFUNCTION
     Dosage: UNK
     Dates: start: 20120106
  2. CIALIS [Suspect]
     Indication: ERECTILE DYSFUNCTION
     Dosage: UNK
     Dates: start: 20120106
  3. PERCOCET [Suspect]
     Indication: ERECTILE DYSFUNCTION
     Dosage: UNK
     Dates: start: 20120106

REACTIONS (2)
  - INCORRECT DOSE ADMINISTERED [None]
  - AMPUTATION OF PENIS [None]
